FAERS Safety Report 21392009 (Version 2)
Quarter: 2023Q1

REPORT INFORMATION
  Report Type: Report from Study
  Country: GB (occurrence: GB)
  Receive Date: 20220929
  Receipt Date: 20230216
  Transmission Date: 20230418
  Serious: Yes (Death)
  Sender: FDA-Public Use
  Company Number: GB-BAYER-2022A134977

PATIENT
  Sex: Male

DRUGS (1)
  1. VENTAVIS [Suspect]
     Active Substance: ILOPROST
     Indication: Pulmonary arterial hypertension
     Dosage: UNK
     Route: 055
     Dates: start: 20220824

REACTIONS (1)
  - Death [Fatal]
